FAERS Safety Report 19201398 (Version 3)
Quarter: 2021Q2

REPORT INFORMATION
  Report Type: Spontaneous
  Country: US (occurrence: US)
  Receive Date: 20210430
  Receipt Date: 20210519
  Transmission Date: 20210717
  Serious: Yes (Hospitalization)
  Sender: FDA-Public Use
  Company Number: US-AMGEN-USASP2021065682

PATIENT
  Age: 71 Year
  Sex: Female

DRUGS (3)
  1. VASCEPA [Concomitant]
     Active Substance: ICOSAPENT ETHYL
     Dosage: UNK
     Dates: start: 202011
  2. REPATHA [Suspect]
     Active Substance: EVOLOCUMAB
     Indication: PRODUCT USED FOR UNKNOWN INDICATION
     Dosage: 140 MILLIGRAM
     Route: 065
     Dates: start: 202011
  3. JARDIANCE [Concomitant]
     Active Substance: EMPAGLIFLOZIN
     Dosage: UNK
     Dates: start: 202011

REACTIONS (3)
  - Device difficult to use [Unknown]
  - Stent placement [Unknown]
  - Wrong technique in product usage process [Unknown]

NARRATIVE: CASE EVENT DATE: 20210414
